FAERS Safety Report 4538918-1 (Version None)
Quarter: 2004Q4

REPORT INFORMATION
  Report Type: 
  Country: None (occurrence: None)
  Receive Date: 20041222
  Receipt Date: 20041207
  Transmission Date: 20050328
  Serious: Yes (Hospitalization, Other)
  Sender: FDA-Public Use
  Company Number: US_980401318

PATIENT
  Age: 59 Year
  Sex: Male
  Weight: 93 kg

DRUGS (12)
  1. HUMALOG [Suspect]
     Indication: DIABETES MELLITUS INSULIN-DEPENDENT
     Dosage: 10 U/4 DAY
     Dates: start: 19980101
  2. HUMULIN N [Suspect]
     Indication: DIABETES MELLITUS INSULIN-DEPENDENT
     Dosage: 30 UG DAY
  3. ILETIN [Suspect]
     Indication: DIABETES MELLITUS
     Dates: start: 19530101, end: 19980101
  4. BETAPACE [Concomitant]
  5. SYNTHROID [Concomitant]
  6. LOTENSIN [Concomitant]
  7. PRAVACHOL [Concomitant]
  8. VITAMIN E [Concomitant]
  9. ASPIRIN [Concomitant]
  10. LANTUS [Concomitant]
  11. MULTI-VITAMIN [Concomitant]
  12. VITAMIN C [Concomitant]

REACTIONS (12)
  - ADHESION [None]
  - BLOOD GLUCOSE FLUCTUATION [None]
  - CONDITION AGGRAVATED [None]
  - DRUG INEFFECTIVE [None]
  - FALL [None]
  - FEELING ABNORMAL [None]
  - HYPOGLYCAEMIA UNAWARENESS [None]
  - IMPAIRED HEALING [None]
  - INTENTIONAL MISUSE [None]
  - LOWER LIMB FRACTURE [None]
  - OPEN WOUND [None]
  - PHARMACEUTICAL PRODUCT COMPLAINT [None]
